FAERS Safety Report 6283606-7 (Version None)
Quarter: 2009Q3

REPORT INFORMATION
  Report Type: 
  Country: None (occurrence: None)
  Receive Date: 20090724
  Receipt Date: 20090429
  Transmission Date: 20100115
  Serious: No
  Sender: FDA-Public Use
  Company Number: US-ALEXION-A200900364

PATIENT
  Sex: Female

DRUGS (7)
  1. SOLIRIS [Suspect]
     Dosage: 600 MG, QWK
     Route: 042
     Dates: start: 20080910, end: 20081001
  2. SOLIRIS [Suspect]
     Dosage: 900 MG, Q2WK
     Route: 042
     Dates: start: 20081008
  3. ESOMEPRAZOLE MAGNESIUM [Concomitant]
     Dosage: UNK
     Route: 048
  4. COMPAZINE                          /00013302/ [Concomitant]
     Dosage: UNK
     Route: 048
  5. IRON [Concomitant]
     Dosage: UNK
     Route: 048
  6. LAMICTAL [Concomitant]
     Dosage: UNK
     Route: 048
  7. FOLIC ACID [Concomitant]
     Dosage: UNK
     Route: 048

REACTIONS (3)
  - FEELING HOT [None]
  - OROPHARYNGEAL PAIN [None]
  - PYREXIA [None]
